FAERS Safety Report 7649475-5 (Version None)
Quarter: 2011Q3

REPORT INFORMATION
  Report Type: 
  Country: None (occurrence: None)
  Receive Date: 20110802
  Receipt Date: 20110725
  Transmission Date: 20111222
  Serious: Yes (Hospitalization, Disabling, Other)
  Sender: FDA-Public Use
  Company Number: US-BAYER-201037907NA

PATIENT
  Age: 57 Year
  Sex: Female

DRUGS (5)
  1. IBUPROFEN [Concomitant]
  2. BETASERON [Suspect]
     Dosage: 8 MIU, QOD
     Route: 058
     Dates: start: 20100830, end: 20110102
  3. VICODIN [Concomitant]
  4. BETASERON [Suspect]
     Indication: SECONDARY PROGRESSIVE MULTIPLE SCLEROSIS
     Route: 058
     Dates: start: 20010327, end: 20040420
  5. ANTIHYPERTENSIVES [Concomitant]
     Indication: HYPERTENSION

REACTIONS (9)
  - HYPOAESTHESIA [None]
  - PSYCHIATRIC SYMPTOM [None]
  - ARTHRALGIA [None]
  - ANKLE FRACTURE [None]
  - ABASIA [None]
  - FALL [None]
  - JOINT SWELLING [None]
  - ANHEDONIA [None]
  - VISUAL IMPAIRMENT [None]
